FAERS Safety Report 6291334-7 (Version None)
Quarter: 2009Q2

REPORT INFORMATION
  Report Type: 
  Country: None (occurrence: None)
  Receive Date: 20090615
  Receipt Date: 20090615
  Transmission Date: 20091009
  Serious: Yes (Other)
  Sender: FDA-Public Use
  Company Number: None

PATIENT
  Sex: Female
  Weight: 81.6475 kg

DRUGS (1)
  1. AUGMENTIN XR [Suspect]
     Indication: ANIMAL BITE
     Dosage: 2 TABS; 2 TIMES DAILY, MOUTH; SKIPPED MAY 5 THEN 1/2 DOSE
     Route: 048
     Dates: start: 20090429

REACTIONS (1)
  - CLOSTRIDIAL INFECTION [None]
